FAERS Safety Report 26009614 (Version 1)
Quarter: 2025Q4

REPORT INFORMATION
  Report Type: Other
  Country: CN (occurrence: CN)
  Receive Date: 20251107
  Receipt Date: 20251107
  Transmission Date: 20260118
  Serious: Yes (Other)
  Sender: ANI
  Company Number: CN-ANIPHARMA-031061

PATIENT
  Age: 52 Year
  Sex: Female

DRUGS (1)
  1. MORPHINE [Suspect]
     Active Substance: MORPHINE
     Indication: Cancer pain
     Route: 037

REACTIONS (2)
  - Therapeutic product effect incomplete [Unknown]
  - Neurotoxicity [Unknown]
